FAERS Safety Report 8903523 (Version 1)
Quarter: 2012Q4

REPORT INFORMATION
  Report Type: Report from Study
  Country: GB (occurrence: GB)
  Receive Date: 20121113
  Receipt Date: 20121113
  Transmission Date: 20130627
  Serious: Yes (Congenital Anomaly)
  Sender: FDA-Public Use
  Company Number: GB-EISAI INC-E2090-02404-SOL-GB

PATIENT

DRUGS (4)
  1. ZONISAMIDE [Suspect]
     Indication: DRUG EXPOSURE IN UTERO
     Dosage: 400 Milligram
     Route: 064
  2. CLOBAZAM [Suspect]
     Indication: DRUG EXPOSURE IN UTERO
     Dosage: unknown
     Route: 064
  3. LAMOTRIGINE [Suspect]
     Indication: DRUG EXPOSURE IN UTERO
     Dosage: unknown
     Route: 064
  4. VALPROIC ACID [Suspect]
     Indication: DRUG EXPOSURE IN UTERO
     Dosage: unknown
     Route: 064

REACTIONS (2)
  - Congenital anomaly [Unknown]
  - Exposure during pregnancy [Unknown]
